FAERS Safety Report 10872813 (Version 1)
Quarter: 2015Q1

REPORT INFORMATION
  Report Type: Report from Study
  Country: ES (occurrence: None)
  Receive Date: 20150223
  Receipt Date: 20150223
  Transmission Date: 20150721
  Serious: Yes (Other)
  Sender: FDA-Public Use
  Company Number: ES2015GSK021312

PATIENT
  Age: 25 Year
  Sex: Male
  Weight: 62 kg

DRUGS (1)
  1. MARAVIROC [Suspect]
     Active Substance: MARAVIROC
     Indication: HIV INFECTION

REACTIONS (1)
  - Abdominal sepsis [None]

NARRATIVE: CASE EVENT DATE: 20141215
